FAERS Safety Report 4642655-2 (Version None)
Quarter: 2005Q2

REPORT INFORMATION
  Report Type: 
  Country: None (occurrence: None)
  Receive Date: 20050422
  Receipt Date: 20050413
  Transmission Date: 20051028
  Serious: Yes (Other)
  Sender: FDA-Public Use
  Company Number: US-JNJFOC-20050206198

PATIENT
  Age: 17 Year
  Sex: Female
  Weight: 63.96 kg

DRUGS (4)
  1. TOPAMAX [Suspect]
     Indication: BIPOLAR DISORDER
     Route: 049
  2. TOPAMAX [Suspect]
     Route: 049
  3. ORAL CONTRACEPTIVE PILL [Concomitant]
     Route: 065
  4. NASACORT [Concomitant]
     Route: 065

REACTIONS (3)
  - BLOOD CHLORIDE INCREASED [None]
  - PCO2 DECREASED [None]
  - TARDIVE DYSKINESIA [None]
